FAERS Safety Report 9007462 (Version 1)
Quarter: 2013Q1

REPORT INFORMATION
  Report Type: Spontaneous
  Country: US (occurrence: US)
  Receive Date: 20130110
  Receipt Date: 20130110
  Transmission Date: 20140127
  Serious: Yes (Hospitalization)
  Sender: FDA-Public Use
  Company Number: US-009507513-1301USA003143

PATIENT
  Age: 56 Year
  Sex: Female

DRUGS (1)
  1. SINGULAIR [Suspect]
     Indication: SARCOIDOSIS
     Route: 048

REACTIONS (6)
  - Sarcoidosis [Unknown]
  - Tremor [Unknown]
  - Surgery [Unknown]
  - Oxygen saturation abnormal [Unknown]
  - Nausea [Unknown]
  - Joint stiffness [Unknown]
